FAERS Safety Report 4599727-0 (Version None)
Quarter: 2005Q1

REPORT INFORMATION
  Report Type: 
  Country: None (occurrence: None)
  Receive Date: 20050307
  Receipt Date: 20050228
  Transmission Date: 20050727
  Serious: Yes (Death, Hospitalization)
  Sender: FDA-Public Use
  Company Number: GB-JNJFOC-20050203843

PATIENT
  Age: 60 Year
  Sex: Male

DRUGS (1)
  1. DURAGESIC-100 [Suspect]
     Route: 062

REACTIONS (3)
  - ACARODERMATITIS [None]
  - APPLICATION SITE REACTION [None]
  - DEATH [None]
